FAERS Safety Report 6270455-9 (Version None)
Quarter: 2009Q3

REPORT INFORMATION
  Report Type: 
  Country: None (occurrence: None)
  Receive Date: 20090716
  Receipt Date: 20090617
  Transmission Date: 20100115
  Serious: Yes (Life-Threatening, Hospitalization)
  Sender: FDA-Public Use
  Company Number: NZ-AVENTIS-200615181GDDC

PATIENT
  Age: 56 Year
  Sex: Male

DRUGS (5)
  1. ARAVA [Suspect]
     Indication: RHEUMATOID ARTHRITIS
     Route: 048
     Dates: start: 20021106, end: 20030316
  2. METHOTREXATE [Suspect]
     Indication: RHEUMATOID ARTHRITIS
     Route: 048
     Dates: start: 20020524, end: 20030316
  3. ENALAPRIL MALEATE [Concomitant]
     Dosage: DOSE: UNK
  4. BENDROFLUAZIDE [Concomitant]
     Dosage: DOSE: UNK
  5. AMITRIPTYLINE [Concomitant]
     Dosage: DOSE: UNK

REACTIONS (8)
  - DEHYDRATION [None]
  - HEPATIC ENZYME INCREASED [None]
  - HEPATITIS [None]
  - LETHARGY [None]
  - PANCYTOPENIA [None]
  - PNEUMONITIS [None]
  - PYREXIA [None]
  - RENAL FAILURE [None]
